FAERS Safety Report 5328342-6 (Version None)
Quarter: 2007Q2

REPORT INFORMATION
  Report Type: 
  Country: None (occurrence: None)
  Receive Date: 20070518
  Receipt Date: 20070515
  Transmission Date: 20071010
  Serious: Yes (Hospitalization)
  Sender: FDA-Public Use
  Company Number: 980121-008010222

PATIENT
  Age: 33 Year
  Sex: Female

DRUGS (2)
  1. MICONAZOLE [Suspect]
     Indication: VAGINAL CANDIDIASIS
     Route: 067
     Dates: start: 19960528, end: 19960528
  2. UNKNOWN [Concomitant]

REACTIONS (1)
  - ANAPHYLACTIC REACTION [None]
